FAERS Safety Report 10222100 (Version 2)
Quarter: 2014Q3

REPORT INFORMATION
  Report Type: Spontaneous
  Country: US (occurrence: US)
  Receive Date: 20140606
  Receipt Date: 20140703
  Transmission Date: 20150326
  Serious: Yes (Other)
  Sender: FDA-Public Use
  Company Number: US-SA-2014SA071622

PATIENT
  Age: 71 Year
  Sex: Female
  Weight: 113.39 kg

DRUGS (32)
  1. ALLEGRA [Concomitant]
     Active Substance: FEXOFENADINE HYDROCHLORIDE
  2. METFORMIN [Concomitant]
     Active Substance: METFORMIN HYDROCHLORIDE
     Dosage: 2-2 DAILY
  3. AMITIZA [Concomitant]
     Active Substance: LUBIPROSTONE
     Dosage: 1-2X DAILY
  4. CHILDRENS ASPIRIN [Concomitant]
     Active Substance: ASPIRIN
  5. KLOR-CON [Concomitant]
     Active Substance: POTASSIUM CHLORIDE
     Dosage: 2 DAILY
  6. SOLOSTAR [Concomitant]
     Active Substance: DEVICE
     Indication: DEVICE THERAPY
  7. SYNTHROID [Concomitant]
     Active Substance: LEVOTHYROXINE SODIUM
  8. ACETAMINOPHEN. [Concomitant]
     Active Substance: ACETAMINOPHEN
     Indication: HEADACHE
     Dosage: 2 EVERY 8 HOURS
  9. ALL OTHER THERAPEUTIC PRODUCTS [Concomitant]
     Active Substance: UNSPECIFIED INGREDIENT
     Dosage: 500 IU, CAL: 630 MG, 3 DAILY
  10. NYSTATIN. [Concomitant]
     Active Substance: NYSTATIN
     Dosage: POWDER, 100000 U/ EXTERNAL, APPLY 2X DAILY WHEN NEEDED
  11. NASONEX [Concomitant]
     Active Substance: MOMETASONE FUROATE
     Dosage: NASAL SPRAY, 2 SPRAY IN EACH NOSTRIL EVERY AM
  12. PRAMIPEXOLE [Concomitant]
     Active Substance: PRAMIPEXOLE
     Dosage: 1-2 DAILY
  13. DIOVAN [Concomitant]
     Active Substance: VALSARTAN
  14. L-LYSINE [Concomitant]
     Dosage: 1-2X DAILY
  15. ZOCOR [Concomitant]
     Active Substance: SIMVASTATIN
  16. CYMBALTA [Concomitant]
     Active Substance: DULOXETINE HYDROCHLORIDE
     Dosage: 1-2X DAILY
  17. LYRICA [Concomitant]
     Active Substance: PREGABALIN
     Dosage: 1-3X DAILY
  18. ACETAMINOPHEN. [Concomitant]
     Active Substance: ACETAMINOPHEN
     Indication: ARTHRITIS
     Dosage: 2 EVERY 8 HOURS
  19. AZELASTINE HYDROCHLORIDE. [Concomitant]
     Active Substance: AZELASTINE HYDROCHLORIDE
     Dosage: 15 % NASAL SPRAY X 2 DAILY
  20. VITAMIN B12 [Concomitant]
     Active Substance: CYANOCOBALAMIN
  21. LANTUS SOLOSTAR [Suspect]
     Active Substance: INSULIN GLARGINE
     Indication: PRODUCT USED FOR UNKNOWN INDICATION
     Dosage: 50 UNITS AT BEDTIME DOSE:50 UNIT(S)
     Route: 058
     Dates: start: 201305
  22. BACLOFEN. [Concomitant]
     Active Substance: BACLOFEN
     Dosage: 1-3 DAILY
  23. DILAUDID [Concomitant]
     Active Substance: HYDROMORPHONE HYDROCHLORIDE
     Dosage: 1-3X DAILY
  24. NYSTATIN. [Concomitant]
     Active Substance: NYSTATIN
     Dosage: 100000 U/BM EXTERNAL APPLY 2X DAILY WHEN NEEDED
  25. ACTOS [Concomitant]
     Active Substance: PIOGLITAZONE HYDROCHLORIDE
     Dosage: 1/2 DAILY
  26. NYSTATIN. [Concomitant]
     Active Substance: NYSTATIN
     Dosage: 2-2X DAILY DOSE:500000 UNIT(S)
  27. MULTIVITAMIN AND MINERAL SUPPLEMENT [Concomitant]
     Active Substance: MINERALS\VITAMINS
  28. OXYBUTYNIN CHLORIDE. [Concomitant]
     Active Substance: OXYBUTYNIN CHLORIDE
     Dosage: 1-2X DAILY
  29. NUVIGIL [Concomitant]
     Active Substance: ARMODAFINIL
     Dosage: 250 M; 1 EARLY AM
  30. VITAMIN D [Concomitant]
     Active Substance: CHOLECALCIFEROL
     Dosage: 1 EVERY WEEK DOSE:5000 UNIT(S)
  31. FUROSEMIDE. [Concomitant]
     Active Substance: FUROSEMIDE
  32. FOLIC ACID. [Concomitant]
     Active Substance: FOLIC ACID

REACTIONS (2)
  - Knee arthroplasty [Unknown]
  - Injection site haemorrhage [Recovered/Resolved]

NARRATIVE: CASE EVENT DATE: 201405
